FAERS Safety Report 7056142-8 (Version None)
Quarter: 2010Q4

REPORT INFORMATION
  Report Type: 
  Country: None (occurrence: None)
  Receive Date: 20101021
  Receipt Date: 20101008
  Transmission Date: 20110411
  Serious: Yes (Other)
  Sender: FDA-Public Use
  Company Number: PHHY2010DE35719

PATIENT
  Sex: Female
  Weight: 54 kg

DRUGS (1)
  1. EXFORGE [Suspect]
     Indication: HYPERTENSION
     Dosage: 80/5 MG, PER DAY
     Route: 048
     Dates: start: 20080301

REACTIONS (4)
  - ANTIACETYLCHOLINE RECEPTOR ANTIBODY POSITIVE [None]
  - BLOOD CREATINE PHOSPHOKINASE INCREASED [None]
  - FIBROMYALGIA [None]
  - PSORIASIS [None]
